FAERS Safety Report 18016334 (Version 1)
Quarter: 2020Q3

REPORT INFORMATION
  Report Type: Report from Study
  Country: US (occurrence: US)
  Receive Date: 20200713
  Receipt Date: 20200713
  Transmission Date: 20201103
  Serious: Yes (Hospitalization)
  Sender: FDA-Public Use
  Company Number: US-ACTELION-A-NJ2019-189921

PATIENT
  Sex: Female
  Weight: 10.88 kg

DRUGS (22)
  1. TRACLEER [Suspect]
     Active Substance: BOSENTAN
     Indication: PULMONARY ARTERIAL HYPERTENSION
     Dosage: 16 MG, BID
     Route: 048
  2. FUROSEMIDE. [Concomitant]
     Active Substance: FUROSEMIDE
  3. HYDROCODONE [Concomitant]
     Active Substance: HYDROCODONE
  4. SILDENAFIL. [Concomitant]
     Active Substance: SILDENAFIL
     Dosage: 9 MG
  5. PREDNISOLONE. [Concomitant]
     Active Substance: PREDNISOLONE
  6. CIPRODEX [Concomitant]
     Active Substance: CIPROFLOXACIN HYDROCHLORIDE\DEXAMETHASONE
  7. AMOXICILLIN. [Concomitant]
     Active Substance: AMOXICILLIN
  8. LASIX [Concomitant]
     Active Substance: FUROSEMIDE
     Dosage: UNK
  9. TRACLEER [Suspect]
     Active Substance: BOSENTAN
     Dosage: 32 MG, BID
     Route: 048
     Dates: start: 201902
  10. MUPIROCIN. [Concomitant]
     Active Substance: MUPIROCIN
  11. ALBUTEROL. [Concomitant]
     Active Substance: ALBUTEROL
  12. PREVACID [Concomitant]
     Active Substance: LANSOPRAZOLE
     Dosage: UNK
  13. MULTIVITAMIN [Concomitant]
     Active Substance: VITAMINS
     Dosage: UNK
  14. NYSTATIN. [Concomitant]
     Active Substance: NYSTATIN
  15. LEVOTHYROXINE. [Concomitant]
     Active Substance: LEVOTHYROXINE
  16. SUCRALFATE. [Concomitant]
     Active Substance: SUCRALFATE
  17. FLOVENT [Concomitant]
     Active Substance: FLUTICASONE PROPIONATE
     Dosage: UNK
  18. FLUTICASONE. [Concomitant]
     Active Substance: FLUTICASONE
  19. IPRATROPIUM [Concomitant]
     Active Substance: IPRATROPIUM
  20. NYSTOP [Concomitant]
     Active Substance: NYSTATIN
  21. LANSOPRAZOLE. [Concomitant]
     Active Substance: LANSOPRAZOLE
  22. SODIUM PHOSPHATE [Concomitant]
     Active Substance: SODIUM PHOSPHATE

REACTIONS (4)
  - Respiratory failure [Not Recovered/Not Resolved]
  - Hospitalisation [Unknown]
  - Pulmonary arterial hypertension [Recovering/Resolving]
  - Liver function test increased [Unknown]
